FAERS Safety Report 13879057 (Version 4)
Quarter: 2018Q2

REPORT INFORMATION
  Report Type: Report from Study
  Country: US (occurrence: US)
  Receive Date: 20170817
  Receipt Date: 20180619
  Transmission Date: 20180711
  Serious: Yes (Hospitalization)
  Sender: FDA-Public Use
  Company Number: US-ACTELION-A-US2017-157962

PATIENT
  Age: 32 Year
  Sex: Female
  Weight: 134.69 kg

DRUGS (4)
  1. TYVASO [Concomitant]
     Active Substance: TREPROSTINIL
  2. OPSUMIT [Suspect]
     Active Substance: MACITENTAN
     Indication: PULMONARY ARTERIAL HYPERTENSION
     Dosage: 10 MG, UNK
     Route: 048
     Dates: start: 201705
  3. DILTIAZEM. [Concomitant]
     Active Substance: DILTIAZEM
  4. OPSUMIT [Suspect]
     Active Substance: MACITENTAN
     Dosage: 10 MG, UNK
     Route: 048
     Dates: start: 20161014, end: 201701

REACTIONS (17)
  - Palpitations [Recovered/Resolved]
  - Nausea [Unknown]
  - Vomiting [Unknown]
  - Hypertension [Unknown]
  - Psychiatric evaluation [Unknown]
  - Chest pain [Unknown]
  - Dyspnoea [Unknown]
  - Hypokalaemia [Recovering/Resolving]
  - Lyme disease [Unknown]
  - Treatment noncompliance [Recovering/Resolving]
  - Lymphadenopathy [Unknown]
  - Right ventricular dilatation [Unknown]
  - Blood sodium decreased [Unknown]
  - Abdominal pain [Unknown]
  - Pulmonary arterial hypertension [Unknown]
  - Weight increased [Recovering/Resolving]
  - Urine output decreased [Recovered/Resolved]

NARRATIVE: CASE EVENT DATE: 20170504
